FAERS Safety Report 11907126 (Version 2)
Quarter: 2016Q1

REPORT INFORMATION
  Report Type: Spontaneous
  Country: US (occurrence: US)
  Receive Date: 20160111
  Receipt Date: 20160201
  Transmission Date: 20160526
  Serious: No
  Sender: FDA-Public Use
  Company Number: US-LUNDBECK-DKLU2008243

PATIENT
  Sex: Female

DRUGS (3)
  1. NORTHERA [Suspect]
     Active Substance: DROXIDOPA
     Route: 065
  2. NORTHERA [Suspect]
     Active Substance: DROXIDOPA
     Indication: PRODUCT USED FOR UNKNOWN INDICATION
     Route: 065
     Dates: start: 201511
  3. NORTHERA [Suspect]
     Active Substance: DROXIDOPA
     Dosage: M, W, F
     Route: 065
     Dates: start: 201512

REACTIONS (4)
  - Blood cortisol decreased [Unknown]
  - Blood pressure decreased [Not Recovered/Not Resolved]
  - Disease complication [Unknown]
  - Hyperhidrosis [Not Recovered/Not Resolved]
